FAERS Safety Report 6610484-6 (Version None)
Quarter: 2010Q1

REPORT INFORMATION
  Report Type: 
  Country: None (occurrence: None)
  Receive Date: 20100302
  Receipt Date: 20100217
  Transmission Date: 20100710
  Serious: Yes (Other)
  Sender: FDA-Public Use
  Company Number: PHHY2010FI08871

PATIENT
  Sex: Female

DRUGS (2)
  1. GLEEVEC [Suspect]
     Indication: CHRONIC MYELOID LEUKAEMIA
     Dosage: 400 MG/ DAY
     Dates: start: 20080123, end: 20090101
  2. GLEEVEC [Suspect]
     Dosage: 600 MG/ DAY
     Dates: start: 20090101

REACTIONS (1)
  - THYROID ADENOMA [None]
